FAERS Safety Report 19676928 (Version 1)
Quarter: 2021Q3

REPORT INFORMATION
  Report Type: Spontaneous
  Country: IN (occurrence: IN)
  Receive Date: 20210810
  Receipt Date: 20210810
  Transmission Date: 20211014
  Serious: Yes (Other)
  Sender: FDA-Public Use
  Company Number: IN-FLORIDAPHARMA-IN-2021FPPLIT00087

PATIENT
  Age: 62 Year
  Sex: Female
  Weight: 65 kg

DRUGS (6)
  1. HYDROXYCHLOROQUINE [Interacting]
     Active Substance: HYDROXYCHLOROQUINE
     Indication: SYSTEMIC LUPUS ERYTHEMATOSUS
     Route: 065
  2. AZATHIOPRINE. [Interacting]
     Active Substance: AZATHIOPRINE
     Indication: SYSTEMIC LUPUS ERYTHEMATOSUS
     Dosage: 1 MONTH
     Route: 065
  3. AZATHIOPRINE. [Interacting]
     Active Substance: AZATHIOPRINE
     Dosage: FOR 3 MONTHS
     Route: 065
  4. PREDNISOLONE. [Interacting]
     Active Substance: PREDNISOLONE
     Indication: SYSTEMIC LUPUS ERYTHEMATOSUS
     Route: 065
  5. MYCOPHENOLATE MOFETIL. [Interacting]
     Active Substance: MYCOPHENOLATE MOFETIL
     Indication: SYSTEMIC LUPUS ERYTHEMATOSUS
     Route: 065
  6. LEVETIRACETAM. [Suspect]
     Active Substance: LEVETIRACETAM
     Indication: SEIZURE
     Route: 065

REACTIONS (1)
  - Lupus-like syndrome [Recovering/Resolving]
